FAERS Safety Report 16889994 (Version 2)
Quarter: 2019Q4

REPORT INFORMATION
  Report Type: Spontaneous
  Country: US (occurrence: US)
  Receive Date: 20191007
  Receipt Date: 20191016
  Transmission Date: 20200122
  Serious: No
  Sender: FDA-Public Use
  Company Number: US-AMGEN-USASP2019160456

PATIENT
  Age: 58 Year
  Sex: Male

DRUGS (4)
  1. TECENTRIQ [Concomitant]
     Active Substance: ATEZOLIZUMAB
  2. NEULASTA [Suspect]
     Active Substance: PEGFILGRASTIM
     Indication: NEUTROPENIA
     Dosage: 6 MILLIGRAM
     Route: 058
  3. CARBOPLATIN. [Concomitant]
     Active Substance: CARBOPLATIN
  4. ETOPOSIDE. [Concomitant]
     Active Substance: ETOPOSIDE

REACTIONS (2)
  - Device use error [Unknown]
  - Drug dose omission by device [Unknown]

NARRATIVE: CASE EVENT DATE: 201909
